FAERS Safety Report 5413984-X (Version None)
Quarter: 2007Q3

REPORT INFORMATION
  Report Type: 
  Country: None (occurrence: None)
  Receive Date: 20070814
  Receipt Date: 20070802
  Transmission Date: 20080115
  Serious: Yes (Death, Hospitalization)
  Sender: FDA-Public Use
  Company Number: DE-ELI_LILLY_AND_COMPANY-DE200708000297

PATIENT
  Age: 49 Year
  Sex: Male
  Weight: 92 kg

DRUGS (3)
  1. DULOXETINE HYDROCHLORIDE [Suspect]
     Dosage: 30 MG, DAILY (1/D)
     Route: 048
     Dates: start: 20070302
  2. ZOPICLON [Concomitant]
     Indication: SLEEP DISORDER
     Dosage: 7.5 UNK, AS NEEDED
     Route: 048
  3. PROMETHAZINE [Concomitant]
     Indication: DEPRESSION
     Dosage: UNK, AS NEEDED
     Route: 048

REACTIONS (5)
  - DEATH [None]
  - DIZZINESS [None]
  - FALL [None]
  - MOTOR DYSFUNCTION [None]
  - URINARY RETENTION [None]
